FAERS Safety Report 5001982-X (Version None)
Quarter: 2006Q2

REPORT INFORMATION
  Report Type: 
  Country: None (occurrence: None)
  Receive Date: 20060515
  Receipt Date: 20060324
  Transmission Date: 20061013
  Serious: Yes (Hospitalization)
  Sender: FDA-Public Use
  Company Number: JP-ROCHE-442220

PATIENT
  Age: 46 Year
  Sex: Male

DRUGS (1)
  1. ROCEPHIN [Suspect]
     Indication: INFECTION
     Route: 042
     Dates: start: 20060317, end: 20060318

REACTIONS (1)
  - MYELODYSPLASTIC SYNDROME [None]
